FAERS Safety Report 5482182-6 (Version None)
Quarter: 2007Q4

REPORT INFORMATION
  Report Type: 
  Country: None (occurrence: None)
  Receive Date: 20071005
  Receipt Date: 20070919
  Transmission Date: 20080405
  Serious: Yes (Life-Threatening, Hospitalization)
  Sender: FDA-Public Use
  Company Number: DSA_30656_2007

PATIENT
  Sex: Male

DRUGS (3)
  1. LORAZEPAM [Suspect]
     Dosage: 25 MG 1X  ORAL
     Route: 048
     Dates: start: 20070919, end: 20070919
  2. CHLORPROTHIXENE (CHLORPROTHIXENE) 50 MG [Suspect]
     Dosage: 600 MG 1X ORAL
     Route: 048
     Dates: start: 20070919, end: 20070919
  3. SEROQUEL [Suspect]
     Dosage: 3600 MG 1X  ORAL
     Route: 048
     Dates: start: 20070919, end: 20070919

REACTIONS (4)
  - MULTIPLE DRUG OVERDOSE [None]
  - SOMNOLENCE [None]
  - SUICIDE ATTEMPT [None]
  - TACHYCARDIA [None]
